FAERS Safety Report 20176102 (Version 1)
Quarter: 2021Q4

REPORT INFORMATION
  Report Type: Spontaneous
  Country: US (occurrence: US)
  Receive Date: 20211213
  Receipt Date: 20211213
  Transmission Date: 20220303
  Serious: No
  Sender: FDA-Public Use
  Company Number: US-009507513-2112USA004170

PATIENT
  Sex: Female

DRUGS (2)
  1. KEYTRUDA [Suspect]
     Active Substance: PEMBROLIZUMAB
     Indication: Endometrial cancer
     Dosage: UNK
  2. LENVATINIB MESYLATE [Suspect]
     Active Substance: LENVATINIB MESYLATE
     Indication: Endometrial cancer
     Dosage: UNK

REACTIONS (9)
  - Stomatitis [Recovered/Resolved]
  - Blister [Recovered/Resolved]
  - Acne [Recovered/Resolved]
  - Drug intolerance [Recovered/Resolved]
  - Skin discolouration [Recovered/Resolved]
  - Skin lesion [Recovered/Resolved]
  - Fatigue [Recovered/Resolved]
  - Thyroid disorder [Recovered/Resolved]
  - Pain [Recovered/Resolved]
